FAERS Safety Report 5553461-9 (Version None)
Quarter: 2007Q4

REPORT INFORMATION
  Report Type: 
  Country: None (occurrence: None)
  Receive Date: 20071213
  Receipt Date: 20071204
  Transmission Date: 20080405
  Serious: Yes (Hospitalization, Other)
  Sender: FDA-Public Use
  Company Number: IL-NOVOPROD-269585

PATIENT

DRUGS (12)
  1. LEVEMIR [Suspect]
     Indication: INSULIN-REQUIRING TYPE II DIABETES MELLITUS
     Dosage: 24 IU, QD
     Dates: start: 20071017
  2. NOVOLOG MIX 70/30 [Suspect]
     Indication: INSULIN-REQUIRING TYPE II DIABETES MELLITUS
     Dosage: 48 IU, QD
     Dates: start: 20071021
  3. FUROSEMIDE [Concomitant]
     Dosage: 40 MG, QD
  4. LOSARTIN [Concomitant]
     Dosage: 50 MG, QD
  5. FLUOXETINE [Concomitant]
     Dosage: 20 MG, QD
  6. ATENOLOL [Concomitant]
     Dosage: 25 MG, QD
  7. THYROXIN [Concomitant]
     Dosage: 100 UG, QD
  8. THYROXIN [Concomitant]
     Dosage: 50 UG, QD
  9. ASPIRIN [Concomitant]
     Dosage: 325 MG, QD
  10. LACTULOSE [Concomitant]
  11. LANTON [Concomitant]
     Route: 048
  12. OCSAAR                             /01121601/ [Concomitant]
     Route: 048

REACTIONS (6)
  - ABDOMINAL DISTENSION [None]
  - ABDOMINAL PAIN UPPER [None]
  - BACK PAIN [None]
  - CONSTIPATION [None]
  - INFLAMMATORY BOWEL DISEASE [None]
  - SPINAL FRACTURE [None]
